FAERS Safety Report 8619554 (Version 2)
Quarter: 2012Q4

REPORT INFORMATION
  Report Type: 
  Country: CA (occurrence: CA)
  Receive Date: 20120618
  Receipt Date: 20120924
  Transmission Date: 20130627
  Serious: Yes (Other)
  Sender: FDA-Public Use
  Company Number: PHHY2011CA099847

PATIENT
  Age: 47 Year
  Sex: Female

DRUGS (1)
  1. GILENYA [Suspect]
     Indication: RELAPSING-REMITTING MULTIPLE SCLEROSIS
     Dosage: 0.5 mg, Daily
     Route: 048
     Dates: start: 20111108

REACTIONS (10)
  - Burnout syndrome [Unknown]
  - Stress [Unknown]
  - Dysarthria [Recovered/Resolved]
  - Balance disorder [Unknown]
  - Blood pressure decreased [Recovered/Resolved]
  - Fatigue [Recovering/Resolving]
  - Somnolence [Recovering/Resolving]
  - Migraine [Unknown]
  - Weight decreased [Unknown]
  - Gastroenteritis viral [Recovering/Resolving]
